FAERS Safety Report 5494238-2 (Version None)
Quarter: 2007Q4

REPORT INFORMATION
  Report Type: 
  Country: None (occurrence: None)
  Receive Date: 20071024
  Receipt Date: 20071018
  Transmission Date: 20080405
  Serious: Yes (Life-Threatening)
  Sender: FDA-Public Use
  Company Number: JP-SP-2006-03012

PATIENT
  Age: 51 Year
  Sex: Female

DRUGS (2)
  1. IMMUCYST [Suspect]
     Indication: CARCINOMA IN SITU OF BLADDER
     Route: 043
     Dates: start: 20061023, end: 20061106
  2. PREDNISOLONE [Suspect]
     Route: 048

REACTIONS (3)
  - BLOOD PRESSURE DECREASED [None]
  - SEPSIS [None]
  - WHITE BLOOD CELL COUNT INCREASED [None]
